FAERS Safety Report 4288530-7 (Version None)
Quarter: 2004Q1

REPORT INFORMATION
  Report Type: 
  Country: None (occurrence: None)
  Receive Date: 20040205
  Receipt Date: 20040119
  Transmission Date: 20041129
  Serious: No
  Sender: FDA-Public Use
  Company Number: 2004AP00269

PATIENT
  Age: 78 Year
  Sex: Male
  Weight: 72 kg

DRUGS (3)
  1. IRESSA [Suspect]
     Indication: NON-SMALL CELL LUNG CANCER
     Dosage: 250 MG DAILY PO
     Route: 048
     Dates: start: 20031101, end: 20040113
  2. ASPIRIN [Concomitant]
  3. PANTOZOL [Concomitant]

REACTIONS (4)
  - DIARRHOEA [None]
  - ENZYME ABNORMALITY [None]
  - PYREXIA [None]
  - VOMITING [None]
